FAERS Safety Report 6519042-5 (Version None)
Quarter: 2009Q4

REPORT INFORMATION
  Report Type: 
  Country: None (occurrence: None)
  Receive Date: 20091228
  Receipt Date: 20091217
  Transmission Date: 20100525
  Serious: Yes (Hospitalization)
  Sender: FDA-Public Use
  Company Number: IT-JNJFOC-20091205672

PATIENT
  Age: 36 Year
  Sex: Male

DRUGS (2)
  1. REMICADE [Suspect]
     Indication: CROHN'S DISEASE
     Route: 042
     Dates: start: 20040701, end: 20091110
  2. METHOTREXATE [Concomitant]

REACTIONS (2)
  - GUILLAIN-BARRE SYNDROME [None]
  - MOTOR DYSFUNCTION [None]
